FAERS Safety Report 4724971-9 (Version None)
Quarter: 2005Q3

REPORT INFORMATION
  Report Type: 
  Country: None (occurrence: None)
  Receive Date: 20050726
  Receipt Date: 20040907
  Transmission Date: 20060218
  Serious: Yes (Hospitalization)
  Sender: FDA-Public Use
  Company Number: CZ-ROCHE-411471

PATIENT
  Age: 54 Year
  Sex: Male
  Weight: 88 kg

DRUGS (5)
  1. DACLIZUMAB [Suspect]
     Route: 042
     Dates: start: 20040731, end: 20040827
  2. MYCOPHENOLATE MOFETIL [Suspect]
     Route: 048
     Dates: start: 20040823, end: 20040824
  3. SIROLIMUS [Suspect]
     Route: 048
     Dates: start: 20040903
  4. PREDNISONUM [Suspect]
     Route: 048
     Dates: start: 20040821
  5. CEFUROXIM [Concomitant]
     Dates: start: 20040824, end: 20040904

REACTIONS (1)
  - SEPSIS [None]
